FAERS Safety Report 8611771-2 (Version None)
Quarter: 2012Q3

REPORT INFORMATION
  Report Type: 
  Country: None (occurrence: None)
  Receive Date: 20120822
  Receipt Date: 20120814
  Transmission Date: 20120928
  Serious: Yes (Hospitalization, Other)
  Sender: FDA-Public Use
  Company Number: US-BAYER-2012-023028

PATIENT
  Age: 33 Year
  Sex: Female
  Weight: 62.132 kg

DRUGS (22)
  1. YAZ [Suspect]
     Indication: ACNE
  2. PHENERGAN HCL [Concomitant]
     Dosage: DAILY DOSE 12.5 MG
     Route: 054
     Dates: start: 20101116
  3. ZOLPIDEM [Concomitant]
     Dosage: UNK
  4. YASMIN [Suspect]
     Indication: ACNE
  5. YASMIN [Suspect]
     Indication: PREMENSTRUAL SYNDROME
  6. DROSPIRENONE AND ETHINYL ESTRADIOL [Suspect]
     Indication: ACNE
  7. CLINDAMYCIN [Concomitant]
     Dosage: UNK
     Route: 061
     Dates: start: 20100928
  8. STEROIDS [Concomitant]
  9. FENTANYL [Concomitant]
     Indication: PAIN MANAGEMENT
     Route: 062
  10. ZYRTEC [Concomitant]
     Dosage: UNK
     Dates: start: 20101109
  11. YAZ [Suspect]
     Indication: PREMENSTRUAL SYNDROME
  12. YASMIN [Suspect]
     Indication: CONTRACEPTION
     Dosage: UNK
     Route: 048
     Dates: start: 20060611, end: 20090201
  13. AMBIEN [Concomitant]
  14. ATIVAN [Concomitant]
  15. DROSPIRENONE AND ETHINYL ESTRADIOL [Suspect]
     Indication: CONTRACEPTION
     Dosage: UNK
     Dates: start: 20060611, end: 20090201
  16. DROSPIRENONE AND ETHINYL ESTRADIOL [Suspect]
     Indication: PREMENSTRUAL SYNDROME
  17. PREDNISONE TAB [Concomitant]
     Dosage: UNK
     Route: 048
     Dates: start: 20101111
  18. YAZ [Suspect]
     Indication: ENDOMETRIOSIS
  19. SINGULAIR [Concomitant]
     Dosage: 10 MG, UNK
  20. FLUTICASONE PROPIONATE [Concomitant]
  21. YAZ [Suspect]
     Indication: CONTRACEPTION
     Dosage: UNK
     Route: 048
     Dates: start: 20090201, end: 20101117
  22. DILAUDID [Concomitant]
     Indication: PAIN MANAGEMENT
     Route: 048

REACTIONS (11)
  - JUGULAR VEIN THROMBOSIS [None]
  - CEREBRAL VENOUS THROMBOSIS [None]
  - EMBOLISM VENOUS [None]
  - INJURY [None]
  - EMOTIONAL DISTRESS [None]
  - MENTAL DISORDER [None]
  - GENERAL PHYSICAL HEALTH DETERIORATION [None]
  - ANXIETY [None]
  - PAIN [None]
  - HEADACHE [None]
  - EYE PAIN [None]
